FAERS Safety Report 23322333 (Version 2)
Quarter: 2024Q3

REPORT INFORMATION
  Report Type: Report from Study
  Country: CA (occurrence: CA)
  Receive Date: 20231220
  Receipt Date: 20240926
  Transmission Date: 20241016
  Serious: Yes (Other)
  Sender: EISAI
  Company Number: CA-Eisai-EC-2023-155381

PATIENT
  Age: 80 Year
  Sex: Female

DRUGS (2)
  1. LENVATINIB [Suspect]
     Active Substance: LENVATINIB
     Indication: Endometrial cancer
     Dosage: DOSE AND FREQUENCY UNKNOWN
     Route: 048
  2. KEYTRUDA [Suspect]
     Active Substance: PEMBROLIZUMAB
     Indication: Endometrial cancer

REACTIONS (5)
  - Dizziness [Recovered/Resolved]
  - Fatigue [Recovered/Resolved]
  - Malignant neoplasm progression [Recovered/Resolved]
  - Urinary tract infection [Recovered/Resolved]
  - Vascular access complication [Recovered/Resolved]
